FAERS Safety Report 11744047 (Version 7)
Quarter: 2018Q1

REPORT INFORMATION
  Report Type: Spontaneous
  Country: US (occurrence: US)
  Receive Date: 20151116
  Receipt Date: 20180130
  Transmission Date: 20180508
  Serious: Yes (Congenital Anomaly, Other)
  Sender: FDA-Public Use
  Company Number: PHEH2015US023593

PATIENT
  Sex: Female

DRUGS (2)
  1. ONDANSETRON HYDROCHLORIDE. [Suspect]
     Active Substance: ONDANSETRON HYDROCHLORIDE
     Indication: FOETAL EXPOSURE DURING PREGNANCY
     Dosage: MOTHER DOSE: 4 MG, TID
     Route: 064
  2. ZOFRAN ODT [Suspect]
     Active Substance: ONDANSETRON HYDROCHLORIDE
     Indication: FOETAL EXPOSURE DURING PREGNANCY
     Dosage: MOTHER DOSE: 8 MG, QD
     Route: 064

REACTIONS (70)
  - Peroneal nerve palsy [Unknown]
  - Limb deformity [Unknown]
  - Congenital musculoskeletal anomaly [Unknown]
  - Otitis media chronic [Unknown]
  - Conductive deafness [Unknown]
  - Anhedonia [Unknown]
  - Scar [Unknown]
  - Periostitis [Unknown]
  - Ear pain [Unknown]
  - Rash [Unknown]
  - Talipes [Unknown]
  - Otitis externa [Unknown]
  - Tonsillar hypertrophy [Unknown]
  - Lymphoedema [Unknown]
  - Decreased appetite [Unknown]
  - Sneezing [Unknown]
  - Dysphonia [Unknown]
  - Anxiety [Unknown]
  - Foetal exposure during pregnancy [Unknown]
  - Cellulitis [Unknown]
  - Osteomyelitis [Unknown]
  - Eustachian tube dysfunction [Unknown]
  - Pain [Unknown]
  - Abdominal pain [Unknown]
  - Learning disorder [Unknown]
  - Speech disorder [Unknown]
  - Pain in extremity [Unknown]
  - Arthralgia [Unknown]
  - Leukocytosis [Unknown]
  - Dizziness [Unknown]
  - Limb malformation [Unknown]
  - Streptococcal infection [Unknown]
  - Wound infection staphylococcal [Unknown]
  - Conjunctivitis [Unknown]
  - Cough [Unknown]
  - Rhinorrhoea [Unknown]
  - Lymphadenopathy [Unknown]
  - Oropharyngeal pain [Unknown]
  - Snoring [Unknown]
  - Pathological fracture [Unknown]
  - Knee deformity [Unknown]
  - Amniotic band syndrome [Unknown]
  - Limb hypoplasia congenital [Unknown]
  - Postoperative wound complication [Unknown]
  - Emotional distress [Unknown]
  - Soft tissue swelling [Unknown]
  - Upper respiratory tract infection [Unknown]
  - Sleep apnoea syndrome [Unknown]
  - Adenoidal hypertrophy [Unknown]
  - Acute sinusitis [Unknown]
  - Wound [Unknown]
  - Nasal congestion [Unknown]
  - Abdominal discomfort [Unknown]
  - Skin graft failure [Unknown]
  - Otitis media acute [Unknown]
  - Scar pain [Unknown]
  - Limb asymmetry [Unknown]
  - Oedema peripheral [Unknown]
  - Hyperkeratosis [Unknown]
  - Viral rash [Unknown]
  - Constipation [Unknown]
  - Congenital anomaly [Unknown]
  - Syndactyly [Unknown]
  - Hand deformity [Unknown]
  - Hepatitis B [Unknown]
  - Ear infection [Unknown]
  - Head injury [Unknown]
  - Eczema [Unknown]
  - Seborrhoeic dermatitis [Unknown]
  - Pyrexia [Unknown]
